FAERS Safety Report 4723109-1 (Version None)
Quarter: 2005Q3

REPORT INFORMATION
  Report Type: 
  Country: None (occurrence: None)
  Receive Date: 20050719
  Receipt Date: 20040721
  Transmission Date: 20060218
  Serious: Yes (Other)
  Sender: FDA-Public Use
  Company Number: 2004221815US

PATIENT
  Age: 86 Year
  Sex: Male
  Weight: 61.2 kg

DRUGS (3)
  1. CELEBREX [Suspect]
     Indication: BACK PAIN
     Dates: start: 20031003, end: 20031005
  2. PREVACID [Concomitant]
  3. SYNTHROID [Concomitant]

REACTIONS (2)
  - DYSURIA [None]
  - THROMBOSIS [None]
